FAERS Safety Report 5093002-6 (Version None)
Quarter: 2006Q3

REPORT INFORMATION
  Report Type: 
  Country: None (occurrence: None)
  Receive Date: 20060830
  Receipt Date: 20060726
  Transmission Date: 20061208
  Serious: Yes (Hospitalization)
  Sender: FDA-Public Use
  Company Number: DE-GLAXOSMITHKLINE-D0050443A

PATIENT
  Age: 66 Year
  Sex: Male
  Weight: 90 kg

DRUGS (5)
  1. LEUKERAN [Suspect]
     Route: 048
     Dates: start: 20060724, end: 20060726
  2. GINGIUM [Concomitant]
     Dosage: 1TAB IN THE MORNING
     Route: 048
     Dates: start: 20060719, end: 20060728
  3. VALORON [Concomitant]
     Dosage: 54MG TWICE PER DAY
     Route: 048
     Dates: start: 20060719, end: 20060728
  4. CEFUROXIME [Concomitant]
     Dosage: 500MG TWICE PER DAY
     Route: 048
     Dates: start: 20060719, end: 20060728
  5. NOVALGIN [Concomitant]
     Dosage: 200MG FOUR TIMES PER DAY
     Route: 048
     Dates: start: 20060719, end: 20060728

REACTIONS (2)
  - THROMBOCYTOPENIA [None]
  - VESSEL PUNCTURE SITE HAEMORRHAGE [None]
